FAERS Safety Report 5879873-1 (Version None)
Quarter: 2008Q3

REPORT INFORMATION
  Report Type: 
  Country: None (occurrence: None)
  Receive Date: 20080911
  Receipt Date: 20080911
  Transmission Date: 20090109
  Serious: Yes (Disabling)
  Sender: FDA-Public Use
  Company Number: None

PATIENT
  Sex: Female
  Weight: 77.1115 kg

DRUGS (2)
  1. RECLAST [Suspect]
     Indication: OSTEITIS DEFORMANS
     Dosage: SMALL IV BAG ONCE IV INJ. IN L ARM
     Route: 042
     Dates: start: 20080401
  2. RECLAST [Suspect]
     Indication: OSTEOPOROSIS
     Dosage: SMALL IV BAG ONCE IV INJ. IN L ARM
     Route: 042
     Dates: start: 20080401

REACTIONS (1)
  - NO ADVERSE EVENT [None]
